FAERS Safety Report 9346901 (Version 1)
Quarter: 2013Q2

REPORT INFORMATION
  Report Type: Spontaneous
  Country: BR (occurrence: BR)
  Receive Date: 20130613
  Receipt Date: 20130613
  Transmission Date: 20140414
  Serious: Yes (Other)
  Sender: FDA-Public Use
  Company Number: PHHY2013BR058122

PATIENT
  Age: 40 Year
  Sex: Female

DRUGS (4)
  1. GLIVEC [Suspect]
     Dosage: 400 MG, UNK
  2. NILOTINIB [Suspect]
     Dosage: 400 MG, QD
  3. PREDNISONE [Suspect]
  4. DASATINIB [Suspect]
     Dosage: UNK

REACTIONS (5)
  - Renal disorder [Unknown]
  - Hepatic lesion [Unknown]
  - Blood bilirubin abnormal [Unknown]
  - Aspartate aminotransferase abnormal [Unknown]
  - Alanine aminotransferase abnormal [Unknown]
